FAERS Safety Report 9517220 (Version 1)
Quarter: 2013Q3

REPORT INFORMATION
  Report Type: Spontaneous
  Country: US (occurrence: US)
  Receive Date: 20130911
  Receipt Date: 20130911
  Transmission Date: 20140515
  Serious: Yes (Other)
  Sender: FDA-Public Use
  Company Number: US-GILEAD-2013-0083102

PATIENT
  Age: 57 Year
  Sex: Male

DRUGS (17)
  1. LETAIRIS [Suspect]
     Indication: PULMONARY ARTERIAL HYPERTENSION
     Dosage: 5 MG, QD
     Dates: start: 20130904
  2. LOSARTAN [Concomitant]
  3. LORAZEPAM [Concomitant]
  4. OMEPRAZOLE [Concomitant]
  5. PROPRANOLOL [Concomitant]
  6. SPIRONOLACTONE [Concomitant]
  7. TRAMADOL [Concomitant]
     Dosage: 50 MG, BID
  8. ONDANSETRON [Concomitant]
  9. ZOLPIDEM [Concomitant]
  10. VENTOLIN                           /00139501/ [Concomitant]
  11. MULTICAPS [Concomitant]
  12. IRON [Concomitant]
  13. LACTULOSE [Concomitant]
  14. FOLIC ACID [Concomitant]
  15. CARAFATE [Concomitant]
  16. FLUTICASONE [Concomitant]
  17. ADCIRCA [Concomitant]

REACTIONS (1)
  - Heart rate increased [Unknown]
